FAERS Safety Report 9103165 (Version 6)
Quarter: 2014Q2

REPORT INFORMATION
  Report Type: Report from Study
  Country: ES (occurrence: ES)
  Receive Date: 20130219
  Receipt Date: 20140512
  Transmission Date: 20141212
  Serious: Yes (Death, Hospitalization)
  Sender: FDA-Public Use
  Company Number: PHHY2013ES014994

PATIENT
  Age: 66 Year
  Sex: Male
  Weight: 87 kg

DRUGS (39)
  1. EVEROLIMUS [Suspect]
     Indication: IMMUNOSUPPRESSION
     Dosage: UNK
     Dates: start: 20111214, end: 20120122
  2. ZELBORAF [Suspect]
     Indication: METASTATIC MALIGNANT MELANOMA
     Dosage: 960 MG, TWICE DAILY
     Route: 048
     Dates: start: 20111229, end: 20120119
  3. OMEPRAZOL ^ACYFABRIK^ [Concomitant]
     Dosage: 20 MG, UNK
  4. OMEPRAZOL ^ACYFABRIK^ [Concomitant]
     Dosage: UNK UKN, UNK
  5. OMEPRAZOL ^ACYFABRIK^ [Concomitant]
     Dosage: 20 MG, UNK
     Dates: start: 20110202
  6. ACTONEL [Concomitant]
     Dosage: 1 DF, UNK
  7. ACTONEL [Concomitant]
     Dosage: 1 DF, UNK
     Dates: start: 20101008
  8. FENTANYL [Concomitant]
     Dosage: 16.66 UG, UNK
  9. FENTANYL [Concomitant]
     Dosage: UNK UKN, UNK
  10. FENTANYL [Concomitant]
     Dosage: 16.66 UG, UNK
     Dates: start: 20111204
  11. EMCONCOR [Concomitant]
     Dosage: 5 MG, UNK
  12. EMCONCOR [Concomitant]
     Dosage: UNK UKN, UNK
  13. EMCONCOR [Concomitant]
     Dosage: 5 MG, UNK
     Dates: start: 20110923
  14. URBASON                                 /GFR/ [Concomitant]
     Dosage: 16 MG, UNK
     Dates: start: 20111015
  15. SEPTRIN [Concomitant]
     Dosage: 1 DF, UNK
  16. SEPTRIN [Concomitant]
     Dosage: UNK UKN, UNK
  17. SEPTRIN [Concomitant]
     Dosage: 1 DF, UNK
     Dates: start: 20110202
  18. ACFOL [Concomitant]
     Dosage: 1 DF, UNK
  19. ACFOL [Concomitant]
     Dosage: UNK UKN, UNK
  20. ACFOL [Concomitant]
     Dosage: 1 DF, UNK
     Dates: start: 20110202
  21. SIMVASTATIN [Concomitant]
     Dosage: 40 MG, UNK
  22. SIMVASTATIN [Concomitant]
     Dosage: UNK UKN, UNK
  23. SIMVASTATIN [Concomitant]
     Dosage: 40 MG, UNK
     Dates: start: 20110802
  24. IDEOS [Concomitant]
     Dosage: 1 DF, UNK
  25. IDEOS [Concomitant]
     Dosage: UNK UKN, UNK
  26. IDEOS [Concomitant]
     Dosage: 1 DF, UNK
     Dates: start: 20101008
  27. TACROLIMUS [Concomitant]
     Indication: IMMUNOSUPPRESSION
     Dosage: UNK UKN, UNK
     Dates: start: 201101
  28. TACROLIMUS [Concomitant]
     Dosage: 8 MG, UNK
     Dates: start: 20120123, end: 20120127
  29. TACROLIMUS [Concomitant]
     Dosage: 10 MG, UNK
     Dates: start: 20120127, end: 20120203
  30. TACROLIMUS [Concomitant]
     Dosage: 20 MG, UNK
     Dates: start: 20120203, end: 20120213
  31. TACROLIMUS [Concomitant]
     Dosage: 16 MG, UNK
     Dates: start: 20120213, end: 20120221
  32. MYCOPHENOLATE MOFETIL [Concomitant]
     Indication: IMMUNOSUPPRESSION
     Dosage: UNK UKN, UNK
  33. METHYLPREDNISOLONE [Concomitant]
     Indication: IMMUNOSUPPRESSION
     Dosage: UNK UKN, UNK
  34. METHYLPREDNISOLONE [Concomitant]
     Dosage: 500 ML, UNK
     Dates: start: 20120121
  35. METHYLPREDNISOLONE [Concomitant]
     Dosage: 80 MG, UNK
     Dates: start: 20120123
  36. METHYLPREDNISOLONE [Concomitant]
     Dosage: 88 NG/DL
     Dates: start: 20120130
  37. METHYLPREDNISOLONE [Concomitant]
     Dosage: 40 MG, UNK
     Dates: start: 20120206
  38. METHYLPREDNISOLONE [Concomitant]
     Dosage: 80 MG, UNK
     Dates: start: 20120219
  39. CYCLOSPORINE [Concomitant]
     Indication: IMMUNOSUPPRESSION
     Dosage: UNK UKN, UNK

REACTIONS (10)
  - Pulmonary oedema [Fatal]
  - Acute coronary syndrome [Fatal]
  - Cardiac failure [Fatal]
  - Respiratory failure [Not Recovered/Not Resolved]
  - Dyspnoea [Unknown]
  - Toxicity to various agents [Unknown]
  - Diffuse alveolar damage [Unknown]
  - Pulmonary alveolar haemorrhage [Unknown]
  - Myocardial ischaemia [Unknown]
  - Opportunistic infection [Unknown]
